FAERS Safety Report 9712083 (Version 1)
Quarter: 2013Q4

REPORT INFORMATION
  Report Type: Spontaneous
  Country: US (occurrence: US)
  Receive Date: 20131126
  Receipt Date: 20131126
  Transmission Date: 20140711
  Serious: No
  Sender: FDA-Public Use
  Company Number: US-BRISTOL-MYERS SQUIBB COMPANY-18839456

PATIENT
  Age: 55 Year
  Sex: Male
  Weight: 97.5 kg

DRUGS (2)
  1. BYDUREON [Suspect]
  2. GLUMETZA [Concomitant]
     Dosage: 1000MG DAILY TO 500MG DAILY

REACTIONS (2)
  - Injection site nodule [Recovered/Resolved]
  - Constipation [Unknown]
